FAERS Safety Report 5958134-6 (Version None)
Quarter: 2008Q4

REPORT INFORMATION
  Report Type: 
  Country: None (occurrence: None)
  Receive Date: 20081117
  Receipt Date: 20081117
  Transmission Date: 20090506
  Serious: Yes (Life-Threatening, Hospitalization)
  Sender: FDA-Public Use
  Company Number: None

PATIENT
  Age: 56 Year
  Sex: Female
  Weight: 92 kg

DRUGS (1)
  1. LYMPHAZURIN [Suspect]
     Indication: SURGERY
     Dosage: 1 CC IN 9CC OF SALINE SURGEON INJECTED CUTANEOUS, OPERATING ROOM USE
     Route: 003
     Dates: start: 20081106, end: 20081106

REACTIONS (1)
  - CIRCULATORY COLLAPSE [None]
